FAERS Safety Report 5242710-2 (Version None)
Quarter: 2007Q1

REPORT INFORMATION
  Report Type: 
  Country: None (occurrence: None)
  Receive Date: 20070221
  Receipt Date: 20070221
  Transmission Date: 20070707
  Serious: Yes (Hospitalization)
  Sender: FDA-Public Use
  Company Number: US-GLAXOSMITHKLINE-A0639816A

PATIENT
  Age: 67 Year
  Sex: Female
  Weight: 51.8 kg

DRUGS (2)
  1. TOPOTECAN [Suspect]
     Dosage: 4.5MGM2 CYCLIC
     Route: 042
     Dates: start: 20070130, end: 20070205
  2. CARBOPLATIN [Suspect]
     Dosage: 327MG CYCLIC
     Route: 042
     Dates: start: 20070130, end: 20070130

REACTIONS (4)
  - CONTUSION [None]
  - FALL [None]
  - PANCYTOPENIA [None]
  - SUBDURAL HAEMATOMA [None]
